FAERS Safety Report 10728265 (Version 5)
Quarter: 2015Q1

REPORT INFORMATION
  Report Type: Spontaneous
  Country: ES (occurrence: ES)
  Receive Date: 20150121
  Receipt Date: 20150312
  Transmission Date: 20150721
  Serious: Yes (Hospitalization, Other)
  Sender: FDA-Public Use
  Company Number: ES-AMGEN-ESPSP2014040295

PATIENT
  Age: 55 Year
  Sex: Female
  Weight: 84 kg

DRUGS (14)
  1. SINTROM [Suspect]
     Active Substance: ACENOCOUMAROL
     Indication: FACTOR V LEIDEN MUTATION
  2. LANTUS [Concomitant]
     Active Substance: INSULIN GLARGINE
     Indication: DIABETES MELLITUS
     Dosage: UNK, ONCE DAILY
     Route: 058
  3. PREDNISONE. [Concomitant]
     Active Substance: PREDNISONE
     Indication: MYASTHENIA GRAVIS
  4. EFFERALGAN CODEINE [Concomitant]
     Active Substance: ACETAMINOPHEN\CODEINE PHOSPHATE
     Indication: PAIN
     Dosage: UNK, AS NEEDED
  5. PREDNISONE. [Concomitant]
     Active Substance: PREDNISONE
     Indication: DYSTONIA
     Dosage: UNK, ALTERNATE DAY
  6. PREDNISONE. [Concomitant]
     Active Substance: PREDNISONE
     Indication: TONGUE PARALYSIS
  7. SINTROM [Suspect]
     Active Substance: ACENOCOUMAROL
     Indication: CARDIAC DISORDER
     Dosage: 4 MG, DAILY (ONE TABLET OF 4 MG DAILY)
     Route: 065
  8. TEVETENS [Concomitant]
     Indication: HYPERTENSION
     Dosage: 600 MG, DAILY (ONE TABLET OF 600 MG DAILY, EVERY 24 HOURS)
  9. NOLOTIL                            /00473101/ [Concomitant]
     Active Substance: METAMIZOLE
     Indication: PAIN
     Dosage: UNK, AS NEEDED
  10. PREDNISONE. [Concomitant]
     Active Substance: PREDNISONE
     Indication: GLOSSITIS
  11. PREDNISONE. [Concomitant]
     Active Substance: PREDNISONE
     Indication: VIITH NERVE PARALYSIS
  12. ENBREL [Suspect]
     Active Substance: ETANERCEPT
     Indication: RHEUMATOID ARTHRITIS
     Dosage: 25 MG, TWICE WEEKLY
     Route: 058
     Dates: start: 20140401, end: 2014
  13. OMEPRAZOLE. [Concomitant]
     Active Substance: OMEPRAZOLE
     Indication: PROPHYLAXIS
     Dosage: 20 MG, DAILY (EVERY 24 HOURS)
  14. ENBREL [Suspect]
     Active Substance: ETANERCEPT
     Dosage: 25 MG, WEEKLY
     Route: 058
     Dates: start: 2014, end: 201501

REACTIONS (18)
  - Depression [Recovered/Resolved]
  - Asthma [Unknown]
  - Lung infection [Unknown]
  - Anxiety [Not Recovered/Not Resolved]
  - Nasopharyngitis [Recovered/Resolved]
  - Anticoagulation drug level abnormal [Not Recovered/Not Resolved]
  - Glossitis [Recovered/Resolved]
  - Pain [Recovered/Resolved]
  - VIIth nerve paralysis [Recovered/Resolved]
  - Diarrhoea [Recovered/Resolved]
  - Bronchitis [Recovered/Resolved]
  - Vulvovaginal dryness [Not Recovered/Not Resolved]
  - Dystonia [Recovered/Resolved]
  - Tongue paralysis [Recovered/Resolved]
  - Pruritus genital [Not Recovered/Not Resolved]
  - Myasthenia gravis [Unknown]
  - Pain in extremity [Recovered/Resolved]
  - Wound [Not Recovered/Not Resolved]

NARRATIVE: CASE EVENT DATE: 2014
